FAERS Safety Report 18897865 (Version 1)
Quarter: 2021Q1

REPORT INFORMATION
  Report Type: Spontaneous
  Country: US (occurrence: US)
  Receive Date: 20210216
  Receipt Date: 20210216
  Transmission Date: 20210420
  Serious: No
  Sender: FDA-Public Use
  Company Number: US-CELLTRION INC.-2021US001222

PATIENT

DRUGS (2)
  1. TRUXIMA [Suspect]
     Active Substance: RITUXIMAB-ABBS
     Dosage: 750 MG EVERY 21 DAYS
     Dates: start: 20210104, end: 20210201
  2. TRUXIMA [Suspect]
     Active Substance: RITUXIMAB-ABBS
     Indication: NODULAR LYMPHOCYTE PREDOMINANT HODGKIN LYMPHOMA
     Dosage: 750 MG EVERY 21 DAYS
     Dates: start: 20201002, end: 20201211

REACTIONS (1)
  - Off label use [Unknown]
